FAERS Safety Report 10017138 (Version 1)
Quarter: 2014Q1

REPORT INFORMATION
  Report Type: Spontaneous
  Country: FR (occurrence: FR)
  Receive Date: 20140318
  Receipt Date: 20140318
  Transmission Date: 20141002
  Serious: Yes (Life-Threatening, Hospitalization)
  Sender: FDA-Public Use
  Company Number: FR-BRISTOL-MYERS SQUIBB COMPANY-20415626

PATIENT
  Age: 88 Year
  Sex: Male

DRUGS (6)
  1. HYDREA CAPS 500 MG [Suspect]
     Indication: MYELOPROLIFERATIVE DISORDER
     Route: 048
     Dates: start: 20140115, end: 20140122
  2. CALCIPARINE [Suspect]
     Route: 058
     Dates: start: 20140117, end: 20140129
  3. EUPANTOL [Concomitant]
     Route: 048
     Dates: start: 20140112
  4. VITAMIN B1 + B6 [Concomitant]
     Route: 048
     Dates: start: 20140112
  5. MECIR [Concomitant]
  6. SOTALOL [Concomitant]

REACTIONS (2)
  - Agranulocytosis [Recovered/Resolved]
  - Thrombocytopenia [Recovered/Resolved]
